FAERS Safety Report 16535395 (Version 1)
Quarter: 2019Q3

REPORT INFORMATION
  Report Type: Spontaneous
  Country: NL (occurrence: NL)
  Receive Date: 20190705
  Receipt Date: 20190705
  Transmission Date: 20191004
  Serious: Yes (Hospitalization)
  Sender: FDA-Public Use
  Company Number: NL-TEVA-2019-NL-1073421

PATIENT
  Age: 59 Year
  Sex: Female
  Weight: 85.3 kg

DRUGS (12)
  1. OXALIPLATINE OPLOSSING VOOR INFUUS, 5 MG/ML (MILLIGRAM PER MILLILITER) [Suspect]
     Active Substance: OXALIPLATIN
     Indication: COLON CANCER
     Dosage: 250 MG IN GLUCOSE 5% 550 ML DRIP EVERY 3 WEEKS
     Dates: start: 20190522
  2. METOCLOPRAMIDE, 10 MG [Concomitant]
     Dosage: ORAL, ZN 3DD, 1 DOSAGE FORMS
     Route: 048
  3. GLUCOSE 5% [Concomitant]
     Active Substance: DEXTROSE
     Dosage: 550 ML DRIP EVERY 3 WEEKS
  4. DEXAMETHASON, 8 MG [Concomitant]
     Dosage: ORAL, 1DD, 1 DOSAGE FORMS.
     Route: 048
  5. PARACETAMOL, 1.000 MG, [Concomitant]
     Dosage: ORAL, ZN 3DD, 1 DOSAGE FORMS
     Route: 048
  6. LOSARTAN, 25 MG [Concomitant]
     Active Substance: LOSARTAN
     Dosage: ORAL, FOR THE NIGHT, 1 DOSAGE FORMS.
     Route: 048
  7. CAPECITABINE, 1.000 MG/M2 (BEHANDELPLAN GEDOCUMENTEERD), [Concomitant]
     Dosage: ORAL,2DD, 1 DOSAGE FORMS.
  8. COLECALCIFEROL, 25.000 IE [Concomitant]
     Dosage: ORAL, 1X PER 4 WKS,1 DOSAGE FORMS
     Route: 048
  9. CETOMACROGOL [Concomitant]
     Active Substance: COSMETICS
     Dosage: 4X PER DAY EXTERNAL AFTER OPENING 1 YEAR SHELF LIFE; FOR USE, PLEASE READ THE PACKAGE LEAFLET PREVEN
  10. TRAMADOL, 50 MG [Concomitant]
     Active Substance: TRAMADOL
     Dosage: ORAL, 3DD (PATIENT TAKES THIS DIFFERENTLY IN: 50 MG, ORALLY, IF NECESSARY 3X A DAY, PAIN, 8-15-23H,
  11. OMEPRAZOL, 40 MG, [Concomitant]
     Dosage: ORAL, 1DD (PATIENT TAKES THIS DIFFERENTLY IN: 40 MG, ORAL, 1X PER DAY, INDICATIONS: CG), 1 DOSAGE FO
  12. KALIUMCHLORIDE, 1.200 MG [Concomitant]
     Dosage: ORAL, 3DD, 1 DOSAGE FORMS

REACTIONS (4)
  - Muscular weakness [Recovered/Resolved]
  - Hypoaesthesia [Unknown]
  - Muscle spasms [Recovered/Resolved]
  - Dizziness [Unknown]

NARRATIVE: CASE EVENT DATE: 20190522
